FAERS Safety Report 12314351 (Version 3)
Quarter: 2017Q2

REPORT INFORMATION
  Report Type: Report from Study
  Country: JP (occurrence: JP)
  Receive Date: 20160428
  Receipt Date: 20170502
  Transmission Date: 20170830
  Serious: Yes (Death, Other)
  Sender: FDA-Public Use
  Company Number: JP-BRISTOL-MYERS SQUIBB COMPANY-BMS-2016-033005

PATIENT
  Age: 64 Year
  Sex: Male

DRUGS (2)
  1. NIVOLUMAB [Suspect]
     Active Substance: NIVOLUMAB
     Indication: NON-SMALL CELL LUNG CANCER
     Dosage: 3 MG/KG, QD
     Route: 041
     Dates: start: 20160315, end: 20160315
  2. NIVOLUMAB [Suspect]
     Active Substance: NIVOLUMAB
     Indication: PRODUCT USED FOR UNKNOWN INDICATION
     Dosage: 3 MG/KG, QD
     Route: 041
     Dates: start: 20160412, end: 20160412

REACTIONS (2)
  - Death [Fatal]
  - Cholangitis [Not Recovered/Not Resolved]

NARRATIVE: CASE EVENT DATE: 20160415
